FAERS Safety Report 9826153 (Version 1)
Quarter: 2013Q4

REPORT INFORMATION
  Report Type: Spontaneous
  Country: US (occurrence: None)
  Receive Date: 20131223
  Receipt Date: 20131223
  Transmission Date: 20140711
  Serious: No
  Sender: FDA-Public Use
  Company Number: 221595LEO

PATIENT
  Sex: Male

DRUGS (2)
  1. PICATO [Suspect]
     Indication: ACTINIC KERATOSIS
     Route: 061
     Dates: start: 20130511, end: 20130513
  2. PICATO [Suspect]
     Route: 061
     Dates: start: 20130511, end: 20130513

REACTIONS (4)
  - Application site dryness [None]
  - Drug administration error [None]
  - Product packaging quantity issue [None]
  - Drug administered at inappropriate site [None]
